FAERS Safety Report 8535529-8 (Version None)
Quarter: 2012Q3

REPORT INFORMATION
  Report Type: 
  Country: None (occurrence: None)
  Receive Date: 20120725
  Receipt Date: 20120720
  Transmission Date: 20120928
  Serious: Yes (Hospitalization)
  Sender: FDA-Public Use
  Company Number: US-AMGEN-USASP2012045248

PATIENT
  Age: 68 Year
  Sex: Male

DRUGS (1)
  1. ENBREL [Suspect]
     Indication: RHEUMATOID ARTHRITIS
     Dosage: 50 MG, QWK
     Dates: start: 20100727, end: 20120612

REACTIONS (5)
  - CORONARY ARTERY OCCLUSION [None]
  - INTRACARDIAC THROMBUS [None]
  - CARDIAC ARREST [None]
  - FATIGUE [None]
  - TACHYCARDIA [None]
